FAERS Safety Report 9557810 (Version 2)
Quarter: 2014Q2

REPORT INFORMATION
  Report Type: Spontaneous
  Country: US (occurrence: US)
  Receive Date: 20130926
  Receipt Date: 20140626
  Transmission Date: 20141212
  Serious: Yes (Death, Other)
  Sender: FDA-Public Use
  Company Number: US-MERCK-1309USA012039

PATIENT
  Sex: Male
  Weight: 106.58 kg

DRUGS (5)
  1. JANUVIA [Suspect]
     Indication: TYPE 2 DIABETES MELLITUS
     Dosage: 100 MG, QD
     Route: 048
     Dates: start: 20090905, end: 20100614
  2. JANUMET [Suspect]
     Indication: TYPE 2 DIABETES MELLITUS
     Dosage: 500/50 MG, BID
     Route: 048
     Dates: start: 20090826
  3. BYETTA [Suspect]
     Indication: TYPE 2 DIABETES MELLITUS
     Dosage: 5 MICROGRAM, QD
     Route: 058
     Dates: start: 20070426
  4. BYETTA [Suspect]
     Dosage: 10 MICROGRAM, QD
     Route: 058
     Dates: start: 20070628
  5. BYETTA [Suspect]
     Dosage: UNK
     Route: 058
     Dates: start: 2006, end: 2007

REACTIONS (4)
  - Pancreatic carcinoma [Fatal]
  - Cardiovascular disorder [Unknown]
  - Pancreatic cyst [Unknown]
  - Radiotherapy to pancreas [Unknown]
